FAERS Safety Report 15746565 (Version 1)
Quarter: 2018Q4

REPORT INFORMATION
  Report Type: Report from Study
  Country: US (occurrence: US)
  Receive Date: 20181220
  Receipt Date: 20181220
  Transmission Date: 20190205
  Serious: Yes (Other)
  Sender: FDA-Public Use
  Company Number: US-JNJFOC-20180323228

PATIENT
  Sex: Male

DRUGS (2)
  1. IMBRUVICA [Suspect]
     Active Substance: IBRUTINIB
     Indication: CHRONIC LYMPHOCYTIC LEUKAEMIA
     Route: 048
     Dates: start: 20171107
  2. IMBRUVICA [Suspect]
     Active Substance: IBRUTINIB
     Indication: CHRONIC LYMPHOCYTIC LEUKAEMIA
     Route: 048

REACTIONS (11)
  - Peripheral swelling [Unknown]
  - Hypoaesthesia [Unknown]
  - Bladder cancer [Not Recovered/Not Resolved]
  - Onychoclasis [Unknown]
  - Urinary bladder polyp [Not Recovered/Not Resolved]
  - Fine motor skill dysfunction [Unknown]
  - Asthenia [Unknown]
  - Skin mass [Unknown]
  - Muscle spasms [Unknown]
  - Sinusitis [Unknown]
  - White blood cell count abnormal [Unknown]
